FAERS Safety Report 21745739 (Version 3)
Quarter: 2023Q1

REPORT INFORMATION
  Report Type: Report from Study
  Country: US (occurrence: US)
  Receive Date: 20221219
  Receipt Date: 20230217
  Transmission Date: 20230418
  Serious: Yes (Other)
  Sender: FDA-Public Use
  Company Number: US-ABBVIE-22K-163-4499344-00

PATIENT
  Age: 57 Year
  Sex: Female

DRUGS (5)
  1. HUMIRA [Suspect]
     Active Substance: ADALIMUMAB
     Indication: Colitis ulcerative
     Dosage: CITRATE FREE
     Route: 058
  2. HUMIRA [Suspect]
     Active Substance: ADALIMUMAB
     Dosage: CITRATE FREE
     Route: 058
  3. MODERNA COVID-19 VACCINE [Suspect]
     Active Substance: ELASOMERAN
     Indication: COVID-19 immunisation
     Dosage: TIME INTERVAL: 1 TOTAL: 1ST DOSE
     Route: 030
     Dates: start: 2021, end: 2021
  4. MODERNA COVID-19 VACCINE [Suspect]
     Active Substance: ELASOMERAN
     Indication: COVID-19 immunisation
     Dosage: TIME INTERVAL: 1 TOTAL: 2ND DOSE
     Route: 030
     Dates: start: 2021, end: 2021
  5. MODERNA COVID-19 VACCINE [Suspect]
     Active Substance: ELASOMERAN
     Indication: COVID-19 immunisation
     Dosage: TIME INTERVAL: 1 TOTAL: 3RD DOSE
     Route: 030
     Dates: start: 2021, end: 2021

REACTIONS (21)
  - Rotator cuff syndrome [Unknown]
  - Shoulder operation [Unknown]
  - Arthropod bite [Unknown]
  - Injection site urticaria [Unknown]
  - Infection [Unknown]
  - Vaccination site nodule [Unknown]
  - Insomnia [Unknown]
  - Colitis [Unknown]
  - Polychondritis [Unknown]
  - Arthralgia [Unknown]
  - Unevaluable event [Unknown]
  - Vaccination site bruising [Unknown]
  - Hip surgery [Unknown]
  - Infected bite [Unknown]
  - Fatigue [Unknown]
  - Hip arthroplasty [Unknown]
  - Injection site reaction [Unknown]
  - Colitis ulcerative [Unknown]
  - Drug hypersensitivity [Unknown]
  - Allergic oedema [Unknown]
  - Erythema [Unknown]

NARRATIVE: CASE EVENT DATE: 20201201
